FAERS Safety Report 18647379 (Version 1)
Quarter: 2020Q4

REPORT INFORMATION
  Report Type: Spontaneous
  Country: FR (occurrence: FR)
  Receive Date: 20201222
  Receipt Date: 20201222
  Transmission Date: 20210114
  Serious: Yes (Hospitalization, Other)
  Sender: FDA-Public Use
  Company Number: FR-AUROBINDO-AUR-APL-2020-062166

PATIENT
  Sex: Female

DRUGS (7)
  1. LAMOTRIGINE 25MG [Suspect]
     Active Substance: LAMOTRIGINE
     Indication: PRODUCT USED FOR UNKNOWN INDICATION
     Dosage: 4 DOSAGE FORM, ONCE A DAY
     Route: 065
  2. LOPRESSOR [Concomitant]
     Active Substance: METOPROLOL TARTRATE
     Indication: PRODUCT USED FOR UNKNOWN INDICATION
     Dosage: 0.4 DOSAGE FORM, ONCE A DAY
     Route: 065
  3. LAMOTRIGINE 25MG [Suspect]
     Active Substance: LAMOTRIGINE
     Dosage: 1 DOSAGE FORM, ONCE A DAY IN THE EVENING
     Route: 065
     Dates: start: 20201123
  4. LAMOTRIGINE 25MG [Suspect]
     Active Substance: LAMOTRIGINE
     Dosage: 2 DOSAGE FORM, ONCE A DAY
     Route: 065
  5. DEPAKINE [Suspect]
     Active Substance: VALPROATE SODIUM
     Indication: PRODUCT USED FOR UNKNOWN INDICATION
     Dosage: 0.5 DOSAGE FORM, TWO TIMES A DAY
     Route: 065
     Dates: start: 20201106
  6. DEPAKINE [Suspect]
     Active Substance: VALPROATE SODIUM
     Dosage: UNK UNK, TWO TIMES A DAY
     Route: 065
     Dates: start: 20201106
  7. FLECAINE [Concomitant]
     Active Substance: FLECAINIDE
     Indication: PRODUCT USED FOR UNKNOWN INDICATION
     Dosage: 2 DOSAGE FORM, ONCE A DAY
     Route: 065

REACTIONS (7)
  - Hyperhidrosis [Unknown]
  - Paraesthesia [Unknown]
  - Toxic epidermal necrolysis [Unknown]
  - Skin exfoliation [Unknown]
  - Erythema [Unknown]
  - Product dose omission in error [Unknown]
  - Skin reaction [Unknown]

NARRATIVE: CASE EVENT DATE: 20201123
